FAERS Safety Report 18457839 (Version 2)
Quarter: 2020Q4

REPORT INFORMATION
  Report Type: Spontaneous
  Country: US (occurrence: US)
  Receive Date: 20201103
  Receipt Date: 20201116
  Transmission Date: 20210114
  Serious: Yes (Hospitalization)
  Sender: FDA-Public Use
  Company Number: US-SAOL THERAPEUTICS-2020SAO00467

PATIENT
  Age: 70 Year
  Sex: Female
  Weight: 112.93 kg

DRUGS (8)
  1. COMPOUNDED BUPIVACAINE [Suspect]
     Active Substance: BUPIVACAINE
     Dosage: UNK; PUMP PROGRAMMED TO MIMIMUM RATE - WITHDRAWN AND FILLED WITH PRESERVATIVE FREE NORMAL SALINE ON
     Route: 037
     Dates: start: 20201004, end: 20201010
  2. TYLENOL WITH CODEINE [Concomitant]
     Active Substance: ACETAMINOPHEN\CODEINE PHOSPHATE
     Dosage: UNK, AS NEEDED
  3. LIORESAL [Suspect]
     Active Substance: BACLOFEN
     Indication: PAIN
     Dosage: 37.006 ?G, \DAY (START DATE ^PRIOR TO 2008^; ALSO REPORTED AS ^37^ ?G/DAY)
     Route: 037
     Dates: end: 20201004
  4. COMPOUNDED BUPIVACAINE [Suspect]
     Active Substance: BUPIVACAINE
     Indication: PAIN
     Dosage: 5.963 MG, \DAY (ALSO REPORTED AS ^5.9 ?G/DAY^)
     Route: 037
     Dates: end: 20201004
  5. COMPOUNDED MORPHINE [Suspect]
     Active Substance: MORPHINE
     Dosage: UNK;  PUMP PROGRAMMED TO MIMIMUM RATE - PUMP PROGRAMMED TO MIMIMUM RATE - WITHDRAWN AND FILLED WITH
     Route: 037
     Dates: start: 20201004, end: 20201010
  6. COMPOUNDED MORPHINE [Suspect]
     Active Substance: MORPHINE
     Indication: PAIN
     Dosage: 9.981 MG, \DAY (ALSO REPORTE AS ^9.98 MG/DAY)
     Route: 037
     Dates: end: 20201004
  7. LIORESAL [Suspect]
     Active Substance: BACLOFEN
     Dosage: UNK; PUMP PROGRAMMED TO MINIMUM RATE-WITHDRAWN AND PUMP FILLED WITH PRESERVATIVE FREE SALINE ON 10-1
     Route: 037
     Dates: start: 20201004, end: 20201010
  8. VALIUM [Concomitant]
     Active Substance: DIAZEPAM
     Dosage: UNK, AS NEEDED

REACTIONS (3)
  - Device failure [Not Recovered/Not Resolved]
  - Muscular weakness [Not Recovered/Not Resolved]
  - Off label use [Not Recovered/Not Resolved]

NARRATIVE: CASE EVENT DATE: 20201004
